FAERS Safety Report 24258575 (Version 1)
Quarter: 2024Q3

REPORT INFORMATION
  Report Type: Spontaneous
  Country: US (occurrence: US)
  Receive Date: 20240828
  Receipt Date: 20240828
  Transmission Date: 20241017
  Serious: No
  Sender: VELOXIS PHARMACEUTICALS
  Company Number: US-VELOXIS PHARMACEUTICALS, INC.-2024-VEL-00319

PATIENT

DRUGS (2)
  1. ENVARSUS XR [Suspect]
     Active Substance: TACROLIMUS
     Indication: Liver transplant
     Dosage: UNK
     Route: 065
  2. ENVARSUS XR [Suspect]
     Active Substance: TACROLIMUS
     Indication: Renal transplant

REACTIONS (1)
  - Prophylaxis against transplant rejection [Unknown]
